FAERS Safety Report 5483907-6 (Version None)
Quarter: 2007Q4

REPORT INFORMATION
  Report Type: 
  Country: None (occurrence: None)
  Receive Date: 20071009
  Receipt Date: 20071009
  Transmission Date: 20080405
  Serious: Yes (Other)
  Sender: FDA-Public Use
  Company Number: None

PATIENT
  Age: 55 Year
  Sex: Female
  Weight: 70.3075 kg

DRUGS (5)
  1. LANTUS [Suspect]
     Indication: DIABETES MELLITUS
     Dosage: 45 UNITS DAILY SUBCUT.
     Route: 058
     Dates: start: 20061122, end: 20070912
  2. NORVASC [Concomitant]
  3. LISINOPRIL [Concomitant]
  4. METFORMIN [Concomitant]
  5. CRESTOR [Concomitant]

REACTIONS (9)
  - BREATH SOUNDS [None]
  - CARDIAC FAILURE [None]
  - CREPITATIONS [None]
  - DYSPNOEA EXERTIONAL [None]
  - FLUID RETENTION [None]
  - GALLOP RHYTHM PRESENT [None]
  - GENERAL PHYSICAL HEALTH DETERIORATION [None]
  - PITTING OEDEMA [None]
  - WEIGHT INCREASED [None]
